FAERS Safety Report 23806926 (Version 1)
Quarter: 2024Q2

REPORT INFORMATION
  Report Type: Spontaneous
  Country: US (occurrence: US)
  Receive Date: 20240502
  Receipt Date: 20240502
  Transmission Date: 20240716
  Serious: Yes (Other)
  Sender: FDA-Public Use
  Company Number: US-DRL-USA-LIT/USA/24/0006456

PATIENT

DRUGS (2)
  1. SIROLIMUS [Suspect]
     Active Substance: SIROLIMUS
     Indication: Vascular malformation
  2. SIROLIMUS [Suspect]
     Active Substance: SIROLIMUS
     Indication: Angioedema

REACTIONS (2)
  - Angioedema [Unknown]
  - Product use in unapproved indication [Unknown]
